FAERS Safety Report 21075185 (Version 1)
Quarter: 2022Q3

REPORT INFORMATION
  Report Type: Spontaneous
  Country: US (occurrence: None)
  Receive Date: 20220712
  Receipt Date: 20220712
  Transmission Date: 20221027
  Serious: Yes (Hospitalization)
  Sender: FDA-Public Use
  Company Number: None

PATIENT
  Age: 30 Year
  Sex: Male

DRUGS (7)
  1. PAXLOVID [Suspect]
     Active Substance: NIRMATRELVIR\RITONAVIR
     Indication: COVID-19
     Dosage: FREQUENCY : TWICE A DAY;?
     Route: 048
     Dates: start: 20220701, end: 20220705
  2. cetirizine 10mg tablet [Concomitant]
     Dates: start: 20220303
  3. cholecalciferol 25mcg [Concomitant]
     Dates: start: 20220307
  4. ESCITALOPRAM [Concomitant]
     Active Substance: ESCITALOPRAM OXALATE
     Dates: start: 20220321
  5. METFORMIN HYDROCHLORIDE [Concomitant]
     Active Substance: METFORMIN HYDROCHLORIDE
     Dates: start: 20220428
  6. mometasone-formoterol [Concomitant]
     Dates: start: 20220304
  7. MONTELUKAST [Concomitant]
     Active Substance: MONTELUKAST SODIUM
     Dates: start: 20220321

REACTIONS (8)
  - Tetany [None]
  - Adverse drug reaction [None]
  - Asthenia [None]
  - Paraesthesia oral [None]
  - Hypoaesthesia [None]
  - Aphasia [None]
  - Tremor [None]
  - Saccadic eye movement [None]

NARRATIVE: CASE EVENT DATE: 20220705
